FAERS Safety Report 9556871 (Version 1)
Quarter: 2013Q3

REPORT INFORMATION
  Report Type: Spontaneous
  Country: US (occurrence: US)
  Receive Date: 20130926
  Receipt Date: 20130926
  Transmission Date: 20140515
  Serious: Yes (Hospitalization, Other)
  Sender: FDA-Public Use
  Company Number: US-GILEAD-2013-0084164

PATIENT
  Sex: Male

DRUGS (5)
  1. LETAIRIS [Suspect]
     Indication: PRODUCT USED FOR UNKNOWN INDICATION
     Dosage: 10 MG, QD
     Dates: start: 20110502
  2. SILDENAFIL [Concomitant]
  3. TYVASO [Concomitant]
  4. ADCIRCA [Concomitant]
  5. WARFARIN [Concomitant]

REACTIONS (5)
  - Pneumonia [Unknown]
  - Unevaluable event [Unknown]
  - Dyspnoea [Unknown]
  - Oedema peripheral [Unknown]
  - Syncope [Recovered/Resolved]
